FAERS Safety Report 14615656 (Version 2)
Quarter: 2018Q2

REPORT INFORMATION
  Report Type: Report from Study
  Country: None (occurrence: US)
  Receive Date: 20180309
  Receipt Date: 20180423
  Transmission Date: 20180711
  Serious: Yes (Hospitalization, Other)
  Sender: FDA-Public Use
  Company Number: US-ABBVIE-18K-163-2277944-00

PATIENT
  Age: 62 Year
  Sex: Female

DRUGS (3)
  1. AMOXICILLIN. [Concomitant]
     Active Substance: AMOXICILLIN
     Indication: PRODUCT USED FOR UNKNOWN INDICATION
  2. HUMIRA [Suspect]
     Active Substance: ADALIMUMAB
     Indication: CROHN^S DISEASE
     Route: 058
     Dates: start: 20171216, end: 20180130
  3. HUMIRA [Suspect]
     Active Substance: ADALIMUMAB
     Dosage: 4 INJECTIONS ON DAY 1
     Route: 058
     Dates: start: 20180406, end: 20180406

REACTIONS (5)
  - Vaginal fistula [Unknown]
  - Cystitis [Recovered/Resolved]
  - Heart rate decreased [Unknown]
  - Vesical fistula [Unknown]
  - Dehydration [Recovered/Resolved]
